FAERS Safety Report 24410372 (Version 2)
Quarter: 2024Q4

REPORT INFORMATION
  Report Type: Report from Study
  Country: US (occurrence: US)
  Receive Date: 20241008
  Receipt Date: 20241011
  Transmission Date: 20250115
  Serious: Yes (Hospitalization, Other)
  Sender: ABBVIE
  Company Number: US-ABBVIE-5950675

PATIENT
  Sex: Female
  Weight: 77.11 kg

DRUGS (3)
  1. RINVOQ [Suspect]
     Active Substance: UPADACITINIB
     Indication: Crohn^s disease
     Dosage: FROM STRENGTH 45 MILLIGRAM
     Route: 048
     Dates: start: 20240701, end: 20240829
  2. RINVOQ [Suspect]
     Active Substance: UPADACITINIB
     Indication: Crohn^s disease
     Dosage: FROM STRENGTH 45 MILLIGRAM
     Route: 048
     Dates: start: 20240908
  3. HYDROCORTISONE [Concomitant]
     Active Substance: HYDROCORTISONE
     Indication: Crohn^s disease

REACTIONS (2)
  - Hernia [Recovering/Resolving]
  - Intestinal prolapse [Recovering/Resolving]

NARRATIVE: CASE EVENT DATE: 20240101
